FAERS Safety Report 5311457-6 (Version None)
Quarter: 2007Q2

REPORT INFORMATION
  Report Type: 
  Country: None (occurrence: None)
  Receive Date: 20070426
  Receipt Date: 20070426
  Transmission Date: 20071010
  Serious: Yes (Other)
  Sender: FDA-Public Use
  Company Number: None

PATIENT
  Age: 52 Year
  Sex: Male
  Weight: 60.8 kg

DRUGS (8)
  1. FENTANYL [Suspect]
  2. BACLOFEN [Concomitant]
  3. CITALOPRAM HYDROBROMIDE [Concomitant]
  4. HYDROCHLOROTHIAZIDE [Concomitant]
  5. LISINOPRIL [Concomitant]
  6. CAPSAICIN [Concomitant]
  7. GABAPENTIN [Concomitant]
  8. OMEPRAZOLE [Concomitant]

REACTIONS (3)
  - DIZZINESS [None]
  - NAUSEA [None]
  - VOMITING [None]
